FAERS Safety Report 14720119 (Version 1)
Quarter: 2018Q1

REPORT INFORMATION
  Report Type: Spontaneous
  Country: US (occurrence: US)
  Receive Date: 20180330
  Receipt Date: 20180330
  Transmission Date: 20180509
  Serious: No
  Sender: FDA-Public Use
  Company Number: None

PATIENT
  Age: 83 Year
  Sex: Female

DRUGS (12)
  1. ALIMTA [Suspect]
     Active Substance: PEMETREXED DISODIUM
     Indication: MESOTHELIOMA
     Dosage: ?          OTHER FREQUENCY:EVERY 21 DAYS;?
     Route: 042
     Dates: start: 20180219, end: 20180330
  2. VALSARTAN. [Concomitant]
     Active Substance: VALSARTAN
  3. LEVOTHYROXINE. [Concomitant]
     Active Substance: LEVOTHYROXINE
  4. COLACE [Concomitant]
     Active Substance: DOCUSATE SODIUM
  5. BREO ELLIPTA [Concomitant]
     Active Substance: FLUTICASONE FUROATE\VILANTEROL TRIFENATATE
  6. ATORVASTATIN [Concomitant]
     Active Substance: ATORVASTATIN
  7. ATROVENT [Concomitant]
     Active Substance: IPRATROPIUM BROMIDE
  8. DILTIAZEM. [Concomitant]
     Active Substance: DILTIAZEM
  9. ALBUTEROL. [Concomitant]
     Active Substance: ALBUTEROL
  10. ALIMTA [Suspect]
     Active Substance: PEMETREXED DISODIUM
     Indication: MESOTHELIOMA
     Route: 042
     Dates: start: 20180219, end: 20180330
  11. VITAMIN D3 5000IU [Concomitant]
  12. ALIMTA [Suspect]
     Active Substance: PEMETREXED DISODIUM
     Indication: MESOTHELIOMA
     Dosage: ?          OTHER FREQUENCY:EVERY 21 DAYS;?
     Route: 042
     Dates: start: 20180219, end: 20180330

REACTIONS (2)
  - Peripheral swelling [None]
  - Skin discolouration [None]

NARRATIVE: CASE EVENT DATE: 20180330
